FAERS Safety Report 22636606 (Version 1)
Quarter: 2023Q2

REPORT INFORMATION
  Report Type: Spontaneous
  Country: FR (occurrence: FR)
  Receive Date: 20230623
  Receipt Date: 20230623
  Transmission Date: 20230722
  Serious: Yes (Other)
  Sender: FDA-Public Use
  Company Number: FR-WOODWARD-2023-FR-000105

PATIENT
  Age: 53 Year
  Sex: Female

DRUGS (9)
  1. RABEPRAZOLE SODIUM [Suspect]
     Active Substance: RABEPRAZOLE SODIUM
     Indication: Hyperchlorhydria
     Dosage: (1 DOSAGE FORMS,1 D)
     Route: 048
  2. METHOTREXATE [Suspect]
     Active Substance: METHOTREXATE
     Dosage: (1 DOSAGE FORMS,1 WK)
     Route: 058
     Dates: start: 20230509, end: 20230530
  3. VALSARTAN [Suspect]
     Active Substance: VALSARTAN
     Dosage: (1 DOSAGE FORMS,1 D)
     Route: 048
  4. LUMIRELAX [Concomitant]
     Dosage: (2 DOSAGE FORMS,1 D)
     Route: 048
  5. ASCORBIC ACID\FERROUS SULFATE [Concomitant]
     Active Substance: ASCORBIC ACID\FERROUS SULFATE
     Dosage: (1 DOSAGE FORMS,1 D)
     Route: 048
  6. DAFALGAN CODEINE [Concomitant]
     Active Substance: ACETAMINOPHEN\CODEINE PHOSPHATE
     Dosage: 1 AS REQUIRED (6 DOSAGE FORMS)
     Route: 048
  7. ZOLPIDEM TARTRATE [Concomitant]
     Active Substance: ZOLPIDEM TARTRATE
     Dosage: (1 DOSAGE FORMS,1 D)
     Route: 048
  8. FOLIC ACID [Concomitant]
     Active Substance: FOLIC ACID
     Dosage: (2 DOSAGE FORMS,1 WK)
     Route: 048
  9. LEVOTHYROXINE SODIUM [Concomitant]
     Active Substance: LEVOTHYROXINE SODIUM
     Dosage: (75 MCG,1 D)
     Route: 048

REACTIONS (2)
  - Photosensitivity reaction [Not Recovered/Not Resolved]
  - Drug interaction [Not Recovered/Not Resolved]

NARRATIVE: CASE EVENT DATE: 20230603
